FAERS Safety Report 8308575-7 (Version None)
Quarter: 2012Q2

REPORT INFORMATION
  Report Type: 
  Country: None (occurrence: None)
  Receive Date: 20120424
  Receipt Date: 20111129
  Transmission Date: 20120825
  Serious: Yes (Other)
  Sender: FDA-Public Use
  Company Number: SG-ROCHE-1061382

PATIENT
  Age: 74 Year
  Sex: Female

DRUGS (1)
  1. LUCENTIS [Suspect]
     Indication: PRODUCT USED FOR UNKNOWN INDICATION
     Route: 050
     Dates: start: 20101001

REACTIONS (4)
  - CARDIAC DISORDER [None]
  - VISUAL ACUITY REDUCED [None]
  - DIABETES MELLITUS [None]
  - RENAL DISORDER [None]
